FAERS Safety Report 5642956-5 (Version None)
Quarter: 2008Q1

REPORT INFORMATION
  Report Type: 
  Country: None (occurrence: None)
  Receive Date: 20080228
  Receipt Date: 20080225
  Transmission Date: 20080703
  Serious: Yes (Hospitalization)
  Sender: FDA-Public Use
  Company Number: US-ASTRAZENECA-2007UW01941

PATIENT
  Age: 53 Year
  Sex: Female
  Weight: 84.1 kg

DRUGS (4)
  1. SEROQUEL [Suspect]
     Indication: BIPOLAR DISORDER
     Route: 048
     Dates: start: 20060326, end: 20060701
  2. GEODON [Concomitant]
     Dates: start: 20060728
  3. HALDOL [Concomitant]
     Dates: start: 20060101, end: 20060101
  4. LITHIUM CARBONATE [Concomitant]
     Dates: start: 19960801

REACTIONS (2)
  - CHOLECYSTECTOMY [None]
  - TYPE 2 DIABETES MELLITUS [None]
